FAERS Safety Report 5101017-4 (Version None)
Quarter: 2006Q3

REPORT INFORMATION
  Report Type: 
  Country: None (occurrence: None)
  Receive Date: 20060911
  Receipt Date: 20060830
  Transmission Date: 20061208
  Serious: Yes (Other)
  Sender: FDA-Public Use
  Company Number: JP-JNJFOC-20060403643

PATIENT
  Age: 7 Decade
  Sex: Female

DRUGS (1)
  1. LEUSTATIN [Suspect]
     Indication: EXTRANODAL MARGINAL ZONE B-CELL LYMPHOMA (MALT TYPE)
     Route: 042

REACTIONS (3)
  - INJECTION SITE INFLAMMATION [None]
  - INJECTION SITE REACTION [None]
  - VASCULITIS [None]
